FAERS Safety Report 5214977-8 (Version None)
Quarter: 2007Q1

REPORT INFORMATION
  Report Type: 
  Country: None (occurrence: None)
  Receive Date: 20070119
  Receipt Date: 20070119
  Transmission Date: 20070707
  Serious: Yes (Hospitalization)
  Sender: FDA-Public Use
  Company Number: None

PATIENT
  Sex: Male
  Weight: 60 kg

DRUGS (1)
  1. OMNIPAQUE 140 [Suspect]
     Indication: DIAGNOSTIC PROCEDURE
     Dosage: 55 CC  IV;  ONE TIME FOR PROCEDURE
     Route: 042

REACTIONS (4)
  - DIALYSIS [None]
  - POST PROCEDURAL COMPLICATION [None]
  - RENAL FAILURE ACUTE [None]
  - RENAL FAILURE CHRONIC [None]
